FAERS Safety Report 4414246-X (Version None)
Quarter: 2004Q3

REPORT INFORMATION
  Report Type: 
  Country: None (occurrence: None)
  Receive Date: 20040729
  Receipt Date: 20040713
  Transmission Date: 20050211
  Serious: Yes (Hospitalization)
  Sender: FDA-Public Use
  Company Number: DSA_24695_2004

PATIENT
  Age: 68 Year
  Sex: Male

DRUGS (8)
  1. DILTIAZEM HYDROCHLORIDE [Suspect]
     Dosage: 200 MG Q DAY PO
     Route: 048
  2. DIFFU K [Suspect]
     Dosage: 1200 MG QAM PO
     Route: 048
     Dates: start: 20040604, end: 20040601
  3. DIFFU K [Suspect]
     Dosage: 600 MG BID PO
     Route: 048
     Dates: start: 20040604
  4. RIVOTRIL [Suspect]
     Dosage: 7.5 MG Q DAY
     Dates: start: 20040605, end: 20040605
  5. ACYCLOVIR [Suspect]
     Indication: HERPES ZOSTER
     Dosage: 750 MG TID
     Dates: start: 20040603, end: 20040605
  6. ZELITREX [Concomitant]
  7. BICARBONATE [Concomitant]
  8. POTASSIUM [Concomitant]

REACTIONS (3)
  - BLOOD BILIRUBIN INCREASED [None]
  - C-REACTIVE PROTEIN INCREASED [None]
  - RENAL FAILURE ACUTE [None]
